FAERS Safety Report 4599948-7 (Version None)
Quarter: 2005Q1

REPORT INFORMATION
  Report Type: 
  Country: None (occurrence: None)
  Receive Date: 20050303
  Receipt Date: 20050221
  Transmission Date: 20050727
  Serious: Yes (Death)
  Sender: FDA-Public Use
  Company Number: 128-20785-05020324

PATIENT
  Age: 64 Year
  Sex: Male

DRUGS (6)
  1. THALIDOMIDE - PHARMION (THALIDOMIDE) (50 MILLIGRAM, CAPSULES) [Suspect]
     Indication: MULTIPLE MYELOMA
     Dosage: 50 MG, DAILY, ORAL
     Route: 048
     Dates: start: 20041130, end: 20050127
  2. DEXAMETHASONE [Suspect]
     Indication: MULTIPLE MYELOMA
     Dosage: DAILY
  3. ERYTHROPOIETIN (ERYTHROPOIETIN) [Concomitant]
  4. ZOLOFT [Concomitant]
  5. HYDROCHLORIDE [Concomitant]
  6. MORPHINE (MORPHINE) [Concomitant]

REACTIONS (9)
  - ANURIA [None]
  - DISEASE PROGRESSION [None]
  - HEPATORENAL FAILURE [None]
  - HYPERKALAEMIA [None]
  - JAUNDICE [None]
  - MALIGNANT NEOPLASM PROGRESSION [None]
  - PAIN [None]
  - PYREXIA [None]
  - SOMNOLENCE [None]
